FAERS Safety Report 17919893 (Version 5)
Quarter: 2020Q4

REPORT INFORMATION
  Report Type: Report from Study
  Country: US (occurrence: US)
  Receive Date: 20200620
  Receipt Date: 20201127
  Transmission Date: 20210113
  Serious: Yes (Death, Hospitalization, Other)
  Sender: FDA-Public Use
  Company Number: US-B.I. PHARMACEUTICALS,INC./RIDGEFIELD-2019-MR-103947

PATIENT
  Age: 73 Year
  Sex: Male
  Weight: 82.1 kg

DRUGS (12)
  1. OFEV [Suspect]
     Active Substance: NINTEDANIB
     Route: 048
     Dates: start: 20190925, end: 20200521
  2. OFEV [Suspect]
     Active Substance: NINTEDANIB
     Route: 048
     Dates: end: 202006
  3. SIMVASTATIN. [Concomitant]
     Active Substance: SIMVASTATIN
     Indication: PRODUCT USED FOR UNKNOWN INDICATION
  4. OFEV [Suspect]
     Active Substance: NINTEDANIB
     Indication: IDIOPATHIC PULMONARY FIBROSIS
     Route: 048
     Dates: start: 20190917
  5. METOPROLOL. [Concomitant]
     Active Substance: METOPROLOL
     Indication: PRODUCT USED FOR UNKNOWN INDICATION
  6. FLOVENT [Concomitant]
     Active Substance: FLUTICASONE PROPIONATE
     Indication: PRODUCT USED FOR UNKNOWN INDICATION
  7. GLIMEPIRIDE. [Concomitant]
     Active Substance: GLIMEPIRIDE
     Indication: PRODUCT USED FOR UNKNOWN INDICATION
  8. TAMSULOSIN [Concomitant]
     Active Substance: TAMSULOSIN
     Indication: PRODUCT USED FOR UNKNOWN INDICATION
  9. ALBUTEROL [SALBUTAMOL] [Concomitant]
     Active Substance: ALBUTEROL
     Indication: PRODUCT USED FOR UNKNOWN INDICATION
  10. DAPTOMYCIN. [Suspect]
     Active Substance: DAPTOMYCIN
     Indication: CELLULITIS
     Route: 065
     Dates: start: 202002
  11. OFEV [Suspect]
     Active Substance: NINTEDANIB
     Route: 048
     Dates: end: 20200716
  12. PLAVIX [Concomitant]
     Active Substance: CLOPIDOGREL BISULFATE
     Indication: PRODUCT USED FOR UNKNOWN INDICATION

REACTIONS (35)
  - Organ failure [Fatal]
  - Diabetes mellitus [Fatal]
  - Liver disorder [Fatal]
  - Ammonia increased [Not Recovered/Not Resolved]
  - Cerebrovascular accident [Unknown]
  - Oxygen saturation abnormal [Not Recovered/Not Resolved]
  - Malaise [Unknown]
  - Diarrhoea [Not Recovered/Not Resolved]
  - Speech disorder [Recovering/Resolving]
  - Diarrhoea [Not Recovered/Not Resolved]
  - Anaemia [Unknown]
  - Taste disorder [Unknown]
  - Cellulitis [Not Recovered/Not Resolved]
  - Eructation [Recovering/Resolving]
  - Peripheral swelling [Unknown]
  - Chills [Recovering/Resolving]
  - Hypersomnia [Recovering/Resolving]
  - Food aversion [Not Recovered/Not Resolved]
  - Weight decreased [Unknown]
  - Hypoxia [Unknown]
  - Respiration abnormal [Fatal]
  - Asthenia [Recovering/Resolving]
  - Dyspnoea [Unknown]
  - Infection [Not Recovered/Not Resolved]
  - Cough [Recovering/Resolving]
  - Sputum discoloured [Recovering/Resolving]
  - Dehydration [Unknown]
  - Productive cough [Unknown]
  - Delirium [Not Recovered/Not Resolved]
  - Hepatic cancer [Unknown]
  - Tremor [Recovering/Resolving]
  - Myocardial infarction [Recovered/Resolved]
  - Dysgraphia [Recovering/Resolving]
  - Epistaxis [Not Recovered/Not Resolved]
  - Blood pressure increased [Not Recovered/Not Resolved]

NARRATIVE: CASE EVENT DATE: 20200110
